FAERS Safety Report 10396028 (Version 1)
Quarter: 2014Q1

REPORT INFORMATION
  Report Type: Spontaneous
  Country: US (occurrence: None)
  Receive Date: 20130724
  Receipt Date: 20130724
  Transmission Date: 20141002
  Serious: Yes (Other)
  Sender: FDA-Public Use
  Company Number: PHHY2011US25791

PATIENT
  Age: 70 Year
  Sex: Female
  Weight: 69.85 kg

DRUGS (1)
  1. GILENYA [Suspect]
     Indication: CHRONIC MYELOID LEUKAEMIA
     Route: 048
     Dates: start: 20060202

REACTIONS (6)
  - White blood cell count abnormal [None]
  - Gastroenteritis viral [None]
  - Vomiting [None]
  - Nausea [None]
  - Muscle spasms [None]
  - Pain in extremity [None]
